FAERS Safety Report 13567595 (Version 4)
Quarter: 2017Q2

REPORT INFORMATION
  Report Type: Spontaneous
  Country: KR (occurrence: KR)
  Receive Date: 20170522
  Receipt Date: 20170621
  Transmission Date: 20170830
  Serious: Yes (Death, Other)
  Sender: FDA-Public Use
  Company Number: PHHY2017KR071846

PATIENT
  Age: 72 Year
  Sex: Male
  Weight: 63.5 kg

DRUGS (2)
  1. TASIGNA [Suspect]
     Active Substance: NILOTINIB
     Indication: CHRONIC MYELOID LEUKAEMIA
     Dosage: 300 MG, BID
     Route: 048
     Dates: start: 20100101, end: 20170501
  2. PACLITAXEL. [Suspect]
     Active Substance: PACLITAXEL
     Indication: PRODUCT USED FOR UNKNOWN INDICATION
     Dosage: UNK
     Route: 065
     Dates: start: 20170421

REACTIONS (9)
  - Loss of consciousness [Fatal]
  - Angiosarcoma [Fatal]
  - Respiratory failure [Fatal]
  - Spinal cord compression [Recovering/Resolving]
  - Cardiac arrest [Fatal]
  - Mass [Unknown]
  - Cerebrovascular accident [Fatal]
  - Second primary malignancy [Fatal]
  - Anaemia [Unknown]

NARRATIVE: CASE EVENT DATE: 20170408
